FAERS Safety Report 9291373 (Version 1)
Quarter: 2013Q2

REPORT INFORMATION
  Report Type: Spontaneous
  Country: US (occurrence: US)
  Receive Date: 20130515
  Receipt Date: 20130515
  Transmission Date: 20140414
  Serious: No
  Sender: FDA-Public Use
  Company Number: US-BAUSCH-BL-2012-001785

PATIENT
  Age: 53 Year
  Sex: Female

DRUGS (1)
  1. BROMDAY 0.09% [Suspect]
     Indication: PREOPERATIVE CARE
     Dosage: DROP; OPHTHALMIC
     Route: 047

REACTIONS (1)
  - Pruritus [Unknown]
